FAERS Safety Report 18207347 (Version 2)
Quarter: 2020Q3

REPORT INFORMATION
  Report Type: Report from Study
  Country: IN (occurrence: IN)
  Receive Date: 20200828
  Receipt Date: 20200908
  Transmission Date: 20201103
  Serious: Yes (Other)
  Sender: FDA-Public Use
  Company Number: IN-AUROBINDO-AUR-APL-2020-044772

PATIENT
  Age: 33 Year
  Sex: Female
  Weight: 50.9 kg

DRUGS (1)
  1. NORETHINDRONE (BA/BE) [Suspect]
     Active Substance: NORETHINDRONE
     Indication: ORAL CONTRACEPTION
     Dosage: 2 TABLETS X 0.35MG
     Route: 048
     Dates: start: 20200805, end: 20200805

REACTIONS (1)
  - Human chorionic gonadotropin positive [Recovered/Resolved]

NARRATIVE: CASE EVENT DATE: 20200814
